FAERS Safety Report 4950697-2 (Version None)
Quarter: 2006Q1

REPORT INFORMATION
  Report Type: 
  Country: None (occurrence: None)
  Receive Date: 20060322
  Receipt Date: 20060307
  Transmission Date: 20060701
  Serious: Yes (Other)
  Sender: FDA-Public Use
  Company Number: US-KINGPHARMUSA00001-K200600333

PATIENT
  Sex: Male

DRUGS (1)
  1. LEVOXYL [Suspect]
     Route: 048

REACTIONS (1)
  - ANOSMIA [None]
